FAERS Safety Report 20491945 (Version 1)
Quarter: 2022Q1

REPORT INFORMATION
  Report Type: Spontaneous
  Country: FR (occurrence: FR)
  Receive Date: 20220218
  Receipt Date: 20220218
  Transmission Date: 20220423
  Serious: Yes (Death, Hospitalization, Congenital Anomaly, Other)
  Sender: FDA-Public Use
  Company Number: FR-ABBVIE-22K-056-4283302-00

PATIENT
  Sex: Male
  Weight: 2.6 kg

DRUGS (3)
  1. VALPROATE SODIUM [Suspect]
     Active Substance: VALPROATE SODIUM
     Indication: Maternal exposure timing unspecified
     Route: 064
  2. VALPROATE SODIUM [Suspect]
     Active Substance: VALPROATE SODIUM
     Indication: Maternal exposure timing unspecified
     Route: 064
  3. FOLIC ACID [Concomitant]
     Active Substance: FOLIC ACID
     Indication: Maternal exposure timing unspecified

REACTIONS (62)
  - Cardiac arrest [Fatal]
  - Cataract [Unknown]
  - Gastrooesophageal reflux disease [Unknown]
  - Congenital multiplex arthrogryposis [Unknown]
  - Foetal growth restriction [Unknown]
  - Foot deformity [Unknown]
  - Hypotonia [Unknown]
  - Chordee [Unknown]
  - Polymicrogyria [Unknown]
  - Kyphoscoliosis [Unknown]
  - Lung disorder [Unknown]
  - Congenital multiplex arthrogryposis [Unknown]
  - Ear disorder [Unknown]
  - Nasal disorder [Unknown]
  - Pharyngeal disorder [Unknown]
  - Hypotonia [Unknown]
  - Growth retardation [Unknown]
  - Regurgitation [Unknown]
  - Psychomotor retardation [Unknown]
  - Dysmorphism [Unknown]
  - Congenital genital malformation [Unknown]
  - Limb deformity [Unknown]
  - Visual impairment [Unknown]
  - Respiratory tract infection [Unknown]
  - Lung disorder [Unknown]
  - Peyronie^s disease [Unknown]
  - Joint range of motion decreased [Unknown]
  - Posture abnormal [Unknown]
  - Foetal growth restriction [Unknown]
  - Dropped head syndrome [Unknown]
  - Eye disorder [Unknown]
  - Dyspnoea [Unknown]
  - Myoclonus [Unknown]
  - Weight decreased [Unknown]
  - Psychomotor retardation [Unknown]
  - Orthosis user [Unknown]
  - Hyperthermia [Unknown]
  - Bronchiolitis [Unknown]
  - Respiratory distress [Unknown]
  - Pharyngeal disorder [Unknown]
  - Klebsiella infection [Unknown]
  - Bronchial disorder [Unknown]
  - Respiratory syncytial virus bronchiolitis [Unknown]
  - General physical health deterioration [Unknown]
  - Neonatal hypoxia [Unknown]
  - Hand deformity [Unknown]
  - Abdominal distension [Unknown]
  - Abdominal discomfort [Unknown]
  - Muscle disorder [Unknown]
  - Growth retardation [Unknown]
  - Eating disorder [Unknown]
  - Ear infection [Unknown]
  - Hand deformity [Unknown]
  - Encephalopathy [Unknown]
  - Epilepsy [Unknown]
  - Learning disorder [Unknown]
  - Urinary tract infection [Unknown]
  - Seizure [Unknown]
  - Vomiting [Unknown]
  - Asthenia [Unknown]
  - Unevaluable event [Unknown]
  - Foetal exposure during pregnancy [Unknown]
